FAERS Safety Report 25358128 (Version 4)
Quarter: 2025Q3

REPORT INFORMATION
  Report Type: Report from Study
  Country: US (occurrence: US)
  Receive Date: 20250526
  Receipt Date: 20250819
  Transmission Date: 20251020
  Serious: No
  Sender: SUNOVION
  Company Number: US-SMPA-2025SPA005345AA

PATIENT
  Age: 81 Year
  Sex: Male

DRUGS (16)
  1. ORGOVYX [Suspect]
     Active Substance: RELUGOLIX
     Indication: Prostate cancer
     Route: 048
  2. ORGOVYX [Suspect]
     Active Substance: RELUGOLIX
     Dosage: 120 MG, QD
     Route: 048
     Dates: start: 20250423
  3. XTANDI [Concomitant]
     Active Substance: ENZALUTAMIDE
     Indication: Prostate cancer
     Dosage: 160 MG, QD
     Dates: start: 20250422
  4. BENAZEPRIL [Concomitant]
     Active Substance: BENAZEPRIL HYDROCHLORIDE
  5. CALCIUM\VITAMIN D [Concomitant]
     Active Substance: CALCIUM\VITAMIN D
  6. CICLOPIROX [Concomitant]
     Active Substance: CICLOPIROX
  7. COLLAGEN [Concomitant]
     Active Substance: COLLAGEN
  8. FISH OIL [Concomitant]
     Active Substance: FISH OIL
  9. GINGER [Concomitant]
     Active Substance: GINGER
  10. Turmeric complex [Concomitant]
  11. supplement alimenticio cancer  mexico hoxefy tonic [Concomitant]
  12. Human Neo40 [Concomitant]
  13. Natural thyroid supplement [Concomitant]
  14. Prostate Complex [Concomitant]
  15. METHIONINE [Concomitant]
     Active Substance: METHIONINE
  16. ADEMETIONINE [Concomitant]
     Active Substance: ADEMETIONINE

REACTIONS (7)
  - Hypoacusis [Unknown]
  - Weight decreased [Unknown]
  - Brain fog [Unknown]
  - Malaise [Unknown]
  - Blood pressure increased [Unknown]
  - Headache [Recovered/Resolved]
  - Fatigue [Unknown]

NARRATIVE: CASE EVENT DATE: 20250422
